FAERS Safety Report 18439229 (Version 1)
Quarter: 2020Q4

REPORT INFORMATION
  Report Type: Report from Study
  Country: None (occurrence: CA)
  Receive Date: 20201029
  Receipt Date: 20201029
  Transmission Date: 20210114
  Serious: Yes (Other)
  Sender: FDA-Public Use
  Company Number: CA-ABBVIE-20K-028-3269058-00

PATIENT
  Age: 56 Year
  Sex: Male

DRUGS (1)
  1. HUMIRA [Suspect]
     Active Substance: ADALIMUMAB
     Indication: COLITIS ULCERATIVE
     Route: 058
     Dates: start: 20191009, end: 20200806

REACTIONS (10)
  - Condition aggravated [Recovered/Resolved]
  - Discomfort [Not Recovered/Not Resolved]
  - Mass [Unknown]
  - Wound secretion [Unknown]
  - Frequent bowel movements [Recovering/Resolving]
  - Crohn^s disease [Not Recovered/Not Resolved]
  - Paraesthesia [Unknown]
  - Wound complication [Unknown]
  - Scrotal abscess [Recovering/Resolving]
  - Gastrointestinal disorder [Not Recovered/Not Resolved]

NARRATIVE: CASE EVENT DATE: 201912
